FAERS Safety Report 8094160-1 (Version None)
Quarter: 2012Q1

REPORT INFORMATION
  Report Type: 
  Country: None (occurrence: None)
  Receive Date: 20120130
  Receipt Date: 20120130
  Transmission Date: 20120608
  Serious: Yes (Other)
  Sender: FDA-Public Use
  Company Number: None

PATIENT
  Age: 23 Year
  Sex: Female
  Weight: 52.163 kg

DRUGS (2)
  1. EXCEDRIN (MIGRAINE) [Suspect]
     Indication: MIGRAINE
     Dosage: 2 CAPS
     Route: 048
     Dates: start: 20120126, end: 20120127
  2. EXCEDRIN [Concomitant]
     Dosage: 2 GEL CAPS
     Route: 048
     Dates: start: 20120126, end: 20120126

REACTIONS (9)
  - ABDOMINAL PAIN UPPER [None]
  - MIGRAINE [None]
  - DISSOCIATION [None]
  - GASTROINTESTINAL DISORDER [None]
  - BALANCE DISORDER [None]
  - PRODUCT QUALITY ISSUE [None]
  - IMPAIRED WORK ABILITY [None]
  - CONDITION AGGRAVATED [None]
  - PALPITATIONS [None]
